FAERS Safety Report 9375961 (Version 1)
Quarter: 2013Q2

REPORT INFORMATION
  Report Type: Spontaneous
  Country: US (occurrence: None)
  Receive Date: 20130628
  Receipt Date: 20130628
  Transmission Date: 20140414
  Serious: Yes (Death)
  Sender: FDA-Public Use
  Company Number: None

PATIENT
  Age: 64 Year
  Sex: Female

DRUGS (1)
  1. AFINITOR [Suspect]
     Indication: BREAST CANCER
     Dosage: 10MG DAILY PO
     Route: 048
     Dates: start: 20130411, end: 20130527

REACTIONS (2)
  - Severe acute respiratory syndrome [None]
  - Pneumonia [None]
